FAERS Safety Report 22635035 (Version 1)
Quarter: 2023Q2

REPORT INFORMATION
  Report Type: Report from Study
  Country: US (occurrence: US)
  Receive Date: 20230623
  Receipt Date: 20230623
  Transmission Date: 20230721
  Serious: Yes (Hospitalization, Other)
  Sender: FDA-Public Use
  Company Number: US-BIOVITRUM-2023-US-01628

PATIENT
  Age: 50 Year
  Sex: Female

DRUGS (3)
  1. KINERET [Suspect]
     Active Substance: ANAKINRA
     Indication: Cryopyrin associated periodic syndrome
     Dosage: TWICE A DAY
     Route: 058
     Dates: start: 20211117
  2. KINERET [Suspect]
     Active Substance: ANAKINRA
     Dosage: ONCE A DAY
     Route: 058
     Dates: start: 20211117
  3. KINERET [Suspect]
     Active Substance: ANAKINRA
     Dosage: DAILY
     Dates: start: 20211117

REACTIONS (10)
  - Pneumonia [Unknown]
  - COVID-19 [Unknown]
  - Pancreatitis [Unknown]
  - Fall [Unknown]
  - Lower limb fracture [Unknown]
  - Intentional product misuse [Not Recovered/Not Resolved]
  - Product dose omission issue [Unknown]
  - Fatigue [Recovering/Resolving]
  - Tibia fracture [Unknown]
  - Fibula fracture [Unknown]

NARRATIVE: CASE EVENT DATE: 20211127
